FAERS Safety Report 4875354-2 (Version None)
Quarter: 2006Q1

REPORT INFORMATION
  Report Type: 
  Country: None (occurrence: None)
  Receive Date: 20060109
  Receipt Date: 20051005
  Transmission Date: 20060701
  Serious: Yes (Hospitalization, Disabling, Other)
  Sender: FDA-Public Use
  Company Number: US-MERCK-0510USA05413

PATIENT
  Age: 65 Year
  Sex: Male
  Weight: 86 kg

DRUGS (4)
  1. VIOXX [Suspect]
     Indication: ARTHRITIS
     Route: 048
     Dates: start: 20000121, end: 20010101
  2. PREVACID [Concomitant]
     Route: 065
  3. ZOCOR [Concomitant]
     Route: 065
  4. DIOVAN [Concomitant]
     Route: 065

REACTIONS (8)
  - ABDOMINAL HERNIA [None]
  - AORTIC SURGERY [None]
  - ISCHAEMIC STROKE [None]
  - NEOPLASM MALIGNANT [None]
  - RENAL DISORDER [None]
  - SMALL INTESTINAL RESECTION [None]
  - THROMBOSIS [None]
  - VISUAL DISTURBANCE [None]
